FAERS Safety Report 20007793 (Version 1)
Quarter: 2021Q4

REPORT INFORMATION
  Report Type: Spontaneous
  Country: US (occurrence: US)
  Receive Date: 20211028
  Receipt Date: 20211028
  Transmission Date: 20220303
  Serious: No
  Sender: FDA-Public Use
  Company Number: US-JNJFOC-20211025725

PATIENT
  Age: 72 Year
  Sex: Female

DRUGS (2)
  1. TREMFYA [Suspect]
     Active Substance: GUSELKUMAB
     Indication: Psoriasis
     Route: 058
     Dates: start: 202107
  2. CYCLOSPORINE [Concomitant]
     Active Substance: CYCLOSPORINE
     Dates: start: 20210107

REACTIONS (1)
  - Infection [Unknown]

NARRATIVE: CASE EVENT DATE: 20211012
